FAERS Safety Report 4596585-5 (Version None)
Quarter: 2005Q1

REPORT INFORMATION
  Report Type: 
  Country: None (occurrence: None)
  Receive Date: 20050228
  Receipt Date: 20050215
  Transmission Date: 20050727
  Serious: Yes (Other)
  Sender: FDA-Public Use
  Company Number: 2004116207

PATIENT
  Sex: Female

DRUGS (2)
  1. CELEBREX [Suspect]
     Indication: ILL-DEFINED DISORDER
  2. ROFECOXIB [Suspect]
     Indication: ILL-DEFINED DISORDER

REACTIONS (6)
  - CARDIAC DISORDER [None]
  - CHEST PAIN [None]
  - GASTROINTESTINAL ULCER [None]
  - NOCTURNAL DYSPNOEA [None]
  - PAIN [None]
  - SPINAL OPERATION [None]
